FAERS Safety Report 7069197-1 (Version None)
Quarter: 2010Q4

REPORT INFORMATION
  Report Type: 
  Country: None (occurrence: None)
  Receive Date: 20101028
  Receipt Date: 20101019
  Transmission Date: 20110411
  Serious: Yes (Other)
  Sender: FDA-Public Use
  Company Number: B0680348A

PATIENT
  Age: 7 Year
  Sex: Male

DRUGS (2)
  1. AVOLVE [Suspect]
     Indication: BENIGN PROSTATIC HYPERPLASIA
     Dosage: .5MG PER DAY
     Route: 048
     Dates: start: 20100801, end: 20101001
  2. SILODOSIN [Suspect]
     Indication: PRODUCT USED FOR UNKNOWN INDICATION
     Route: 048

REACTIONS (1)
  - HEPATIC FUNCTION ABNORMAL [None]
